FAERS Safety Report 12528280 (Version 1)
Quarter: 2016Q3

REPORT INFORMATION
  Report Type: Spontaneous
  Country: JP (occurrence: JP)
  Receive Date: 20160705
  Receipt Date: 20160705
  Transmission Date: 20161109
  Serious: Yes (Death)
  Sender: FDA-Public Use
  Company Number: JP-MALLINCKRODT-T201602807

PATIENT
  Age: 76 Year
  Sex: Male
  Weight: 55 kg

DRUGS (16)
  1. METHADONE [Suspect]
     Active Substance: METHADONE HYDROCHLORIDE
     Indication: CANCER PAIN
     Dosage: 5 MG, (15 MG DAILY DOSE)
     Route: 048
     Dates: start: 20141212, end: 20141230
  2. PARIET [Concomitant]
     Active Substance: RABEPRAZOLE SODIUM
     Dosage: 10MG
     Route: 048
     Dates: end: 20141229
  3. XYLOCAINE [Concomitant]
     Active Substance: LIDOCAINE HYDROCHLORIDE
     Indication: ANALGESIC THERAPY
     Dosage: 25 ML
     Route: 051
     Dates: start: 20141222, end: 20150104
  4. AMIGRAND [Concomitant]
     Dosage: 500 ML
     Route: 051
     Dates: start: 20141222, end: 20150104
  5. FINIBAX [Concomitant]
     Active Substance: DORIPENEM MONOHYDRATE
     Dosage: 0.5 MG
     Route: 051
     Dates: start: 20141221, end: 20141225
  6. OXIFAST [Concomitant]
     Active Substance: OXYCODONE
     Dosage: UNK
     Route: 051
     Dates: start: 20141215, end: 20141222
  7. FUROSEMIDE. [Concomitant]
     Active Substance: FUROSEMIDE
     Dosage: 20 MG
     Route: 048
     Dates: end: 20141229
  8. SOLITA-T1 [Concomitant]
     Dosage: 200 ML
     Route: 051
     Dates: start: 20141221, end: 20141222
  9. RINDERON V [Concomitant]
     Active Substance: BETAMETHASONE VALERATE
     Dosage: 4 MG
     Route: 051
     Dates: start: 20141221, end: 20150104
  10. ROPION [Concomitant]
     Active Substance: FLURBIPROFEN AXETIL
     Indication: ANALGESIC THERAPY
     Dosage: 150 MG
     Route: 051
     Dates: start: 20141222, end: 20150104
  11. OXIFAST [Concomitant]
     Active Substance: OXYCODONE
     Indication: ANALGESIC THERAPY
     Dosage: 1,5 MG PRN
     Route: 051
     Dates: start: 20141221
  12. JZOLOFT [Concomitant]
     Active Substance: SERTRALINE HYDROCHLORIDE
     Indication: ANALGESIC THERAPY
     Dosage: 25 MG
     Route: 048
     Dates: end: 20141229
  13. AMLODIPINE [Concomitant]
     Active Substance: AMLODIPINE BESYLATE
     Dosage: 5MG
     Route: 048
     Dates: end: 20141229
  14. LOXOPROFEN [Concomitant]
     Active Substance: LOXOPROFEN
     Indication: ANALGESIC THERAPY
     Dosage: 180 MG
     Route: 048
     Dates: end: 20141229
  15. MAGMITT [Concomitant]
     Active Substance: MAGNESIUM OXIDE
     Dosage: 1980 MG
     Route: 048
     Dates: end: 20141229
  16. LYRICA [Concomitant]
     Active Substance: PREGABALIN
     Indication: ANALGESIC THERAPY
     Dosage: 300 MG
     Route: 048
     Dates: end: 20141218

REACTIONS (1)
  - Rectosigmoid cancer [Fatal]

NARRATIVE: CASE EVENT DATE: 20150104
